FAERS Safety Report 11928964 (Version 1)
Quarter: 2016Q1

REPORT INFORMATION
  Report Type: Spontaneous
  Country: TR (occurrence: TR)
  Receive Date: 20160120
  Receipt Date: 20160120
  Transmission Date: 20160526
  Serious: Yes (Other)
  Sender: FDA-Public Use
  Company Number: TR-ROCHE-1695630

PATIENT
  Sex: Male
  Weight: 83 kg

DRUGS (1)
  1. XOLAIR [Suspect]
     Active Substance: OMALIZUMAB
     Indication: ASTHMA
     Route: 058

REACTIONS (3)
  - Rash erythematous [Recovering/Resolving]
  - Skin fissures [Recovering/Resolving]
  - Palmoplantar keratoderma [Recovering/Resolving]
